FAERS Safety Report 21631391 (Version 2)
Quarter: 2023Q1

REPORT INFORMATION
  Report Type: Other
  Country: CN (occurrence: None)
  Receive Date: 20221123
  Receipt Date: 20230217
  Transmission Date: 20230417
  Serious: Yes (Other)
  Sender: FDA-Public Use
  Company Number: CN-ROCHE-3219422

PATIENT
  Age: 53 Year
  Sex: Male

DRUGS (4)
  1. CAPECITABINE [Suspect]
     Active Substance: CAPECITABINE
     Indication: Small intestine adenocarcinoma
     Route: 065
     Dates: start: 20210411
  2. BEVACIZUMAB [Suspect]
     Active Substance: BEVACIZUMAB
     Indication: Small intestine adenocarcinoma
     Dosage: ADMINISTERED ONCE DURING A TREATMENT CYCLE, AND 21 DAYS WAS USED FOR ONE TREATMENT CYCLE
     Route: 042
     Dates: start: 20210411
  3. TS-1 [Suspect]
     Active Substance: GIMERACIL\OTERACIL\TEGAFUR
     Indication: Small intestine adenocarcinoma
     Route: 065
  4. OXALIPLATIN [Concomitant]
     Active Substance: OXALIPLATIN
     Indication: Small intestine adenocarcinoma

REACTIONS (3)
  - Palmar-plantar erythrodysaesthesia syndrome [Recovered/Resolved]
  - Myelosuppression [Unknown]
  - Off label use [Unknown]
